FAERS Safety Report 10994114 (Version 1)
Quarter: 2015Q2

REPORT INFORMATION
  Report Type: Spontaneous
  Country: US (occurrence: None)
  Receive Date: 20150406
  Receipt Date: 20150406
  Transmission Date: 20150821
  Serious: No
  Sender: FDA-Public Use
  Company Number: None

PATIENT
  Age: 68 Year
  Sex: Male
  Weight: 54.43 kg

DRUGS (2)
  1. LEVAQUIN [Suspect]
     Active Substance: LEVOFLOXACIN
     Indication: ANTIBIOTIC PROPHYLAXIS
     Route: 048
     Dates: start: 20150325, end: 20150331
  2. PRAMAPEXOLE [Concomitant]

REACTIONS (5)
  - Muscle rupture [None]
  - Pain [None]
  - Contusion [None]
  - Weight bearing difficulty [None]
  - Musculoskeletal injury [None]

NARRATIVE: CASE EVENT DATE: 20150331
